FAERS Safety Report 5107496-0 (Version None)
Quarter: 2006Q3

REPORT INFORMATION
  Report Type: 
  Country: None (occurrence: None)
  Receive Date: 20060731
  Receipt Date: 20060407
  Transmission Date: 20061208
  Serious: No
  Sender: FDA-Public Use
  Company Number: 2006PV011744

PATIENT
  Age: 65 Year
  Sex: Female
  Weight: 53.5244 kg

DRUGS (7)
  1. BYETTA [Suspect]
     Indication: DIABETES MELLITUS NON-INSULIN-DEPENDENT
     Dosage: 10 MCG;BID;SC; SEE IMAGE
     Route: 058
     Dates: start: 20060201, end: 20060307
  2. BYETTA [Suspect]
     Indication: DIABETES MELLITUS NON-INSULIN-DEPENDENT
     Dosage: 10 MCG;BID;SC; SEE IMAGE
     Route: 058
     Dates: start: 20060301, end: 20060401
  3. BYETTA [Suspect]
     Indication: DIABETES MELLITUS NON-INSULIN-DEPENDENT
     Dosage: 10 MCG;BID;SC; SEE IMAGE
     Route: 058
     Dates: start: 20060308
  4. BYETTA [Suspect]
     Indication: DIABETES MELLITUS NON-INSULIN-DEPENDENT
     Dosage: 10 MCG;BID;SC; SEE IMAGE
     Route: 058
     Dates: start: 20060401
  5. BYETTA [Suspect]
  6. AVANIDIA [Concomitant]
  7. AVANDIA [Concomitant]

REACTIONS (8)
  - BLOOD CHOLESTEROL INCREASED [None]
  - BLOOD GLUCOSE DECREASED [None]
  - BLOOD GLUCOSE INCREASED [None]
  - BLOOD IRON DECREASED [None]
  - DISORIENTATION [None]
  - LETHARGY [None]
  - NAUSEA [None]
  - WEIGHT DECREASED [None]
